FAERS Safety Report 8803668 (Version 2)
Quarter: 2012Q4

REPORT INFORMATION
  Report Type: Report from Study
  Country: CA (occurrence: CA)
  Receive Date: 20120924
  Receipt Date: 20120928
  Transmission Date: 20130627
  Serious: Yes (Other)
  Sender: FDA-Public Use
  Company Number: CA-JNJFOC-20120908622

PATIENT
  Sex: Female
  Weight: 76 kg

DRUGS (4)
  1. REMICADE [Suspect]
     Indication: CROHN^S DISEASE
     Route: 042
     Dates: start: 20110328
  2. PREMARIN [Concomitant]
     Dosage: for 3 years
     Route: 065
  3. VALACICLOVIR [Concomitant]
     Indication: RASH
     Dosage: started previous  year, questionably 9 months
     Route: 065
  4. METHOTREXATE [Concomitant]
     Route: 048
     Dates: start: 201103

REACTIONS (4)
  - Cholelithiasis [Unknown]
  - Chest pain [Not Recovered/Not Resolved]
  - Hot flush [Not Recovered/Not Resolved]
  - Blister [Recovered/Resolved]
